FAERS Safety Report 10771875 (Version 1)
Quarter: 2015Q1

REPORT INFORMATION
  Report Type: Spontaneous
  Country: DE (occurrence: DE)
  Receive Date: 20150206
  Receipt Date: 20150206
  Transmission Date: 20150721
  Serious: Yes (Other)
  Sender: FDA-Public Use
  Company Number: GXKR2015DE000894

PATIENT
  Age: 72 Year
  Sex: Female
  Weight: 72 kg

DRUGS (7)
  1. CALCIUM [Concomitant]
     Active Substance: CALCIUM
  2. MAGNESIUM [Concomitant]
     Active Substance: MAGNESIUM
  3. ALENDRON-HEXAL [Suspect]
     Active Substance: ALENDRONATE SODIUM
     Indication: COMPLEX REGIONAL PAIN SYNDROME
  4. ALENDRON-HEXAL [Suspect]
     Active Substance: ALENDRONATE SODIUM
     Indication: OSTEOPOROSIS
     Dosage: 70 MG, QW
     Route: 048
     Dates: start: 201410, end: 201410
  5. ALENDRONSAEURE HEUMANN [Suspect]
     Active Substance: ALENDRONATE SODIUM
     Indication: OSTEOPOROSIS
     Dosage: 70 MG, QW
     Route: 048
     Dates: start: 201411
  6. ALENDRONSAEURE HEUMANN [Suspect]
     Active Substance: ALENDRONATE SODIUM
     Indication: COMPLEX REGIONAL PAIN SYNDROME
  7. DICLAC [Concomitant]
     Active Substance: DICLOFENAC POTASSIUM
     Indication: BACK PAIN
     Dosage: 75 MG, QD
     Route: 048
     Dates: start: 2014

REACTIONS (2)
  - Gingivitis [Not Recovered/Not Resolved]
  - Headache [Not Recovered/Not Resolved]

NARRATIVE: CASE EVENT DATE: 201412
